FAERS Safety Report 9149203 (Version 2)
Quarter: 2013Q2

REPORT INFORMATION
  Report Type: Spontaneous
  Country: US (occurrence: US)
  Receive Date: 20130308
  Receipt Date: 20130409
  Transmission Date: 20140414
  Serious: No
  Sender: FDA-Public Use
  Company Number: US-PFIZER INC-2013077763

PATIENT
  Age: 81 Year
  Sex: Female

DRUGS (1)
  1. PROTONIX [Suspect]
     Dosage: 40 MG, ONE TAB Q DAY
     Route: 048

REACTIONS (1)
  - Abdominal pain upper [Unknown]
